FAERS Safety Report 9857070 (Version 3)
Quarter: 2014Q1

REPORT INFORMATION
  Report Type: Spontaneous
  Country: US (occurrence: US)
  Receive Date: 20140130
  Receipt Date: 20140318
  Transmission Date: 20141002
  Serious: Yes (Other)
  Sender: FDA-Public Use
  Company Number: US-MYLANLABS-2014S1001647

PATIENT
  Age: 43 Year
  Sex: Female

DRUGS (2)
  1. CITALOPRAM TABLETS [Suspect]
     Indication: DEPRESSION
     Route: 048
     Dates: start: 20130702, end: 20130910
  2. LEVOXYL [Concomitant]
     Indication: HYPOTHYROIDISM

REACTIONS (12)
  - Drug ineffective [Recovered/Resolved]
  - Depression [Recovered/Resolved]
  - Activities of daily living impaired [Recovered/Resolved]
  - Suicidal ideation [Recovered/Resolved]
  - Hypersomnia [Recovered/Resolved]
  - Disturbance in attention [Recovered/Resolved]
  - Irritability [Recovered/Resolved]
  - Antisocial behaviour [Recovered/Resolved]
  - Marital problem [Recovered/Resolved]
  - Decreased activity [Recovered/Resolved]
  - Increased appetite [Recovered/Resolved]
  - Weight increased [Recovered/Resolved]
